FAERS Safety Report 7982915-0 (Version None)
Quarter: 2011Q4

REPORT INFORMATION
  Report Type: 
  Country: None (occurrence: None)
  Receive Date: 20111215
  Receipt Date: 20111207
  Transmission Date: 20120403
  Serious: Yes (Other)
  Sender: FDA-Public Use
  Company Number: PHHY2011GB106964

PATIENT
  Age: 53 Year
  Sex: Female

DRUGS (7)
  1. TENOFOVIR [Concomitant]
     Indication: HIV INFECTION
  2. RITONAVIR/ ATAZANAVIR [Interacting]
     Indication: HIV INFECTION
  3. PREDNISOLONE [Concomitant]
     Indication: IMMUNOSUPPRESSION
     Dosage: 20 MG, QD
  4. ABACAVIR [Concomitant]
     Indication: HIV INFECTION
  5. MYFORTIC [Concomitant]
     Dosage: 540 MG, BID
  6. ACYCLOVIR [Concomitant]
     Indication: HERPES SIMPLEX
  7. TACROLIMUS [Suspect]
     Indication: IMMUNOSUPPRESSION
     Dosage: 1.5 MG, BID

REACTIONS (9)
  - HAEMATOMA [None]
  - RENAL TUBULAR NECROSIS [None]
  - BLOOD BILIRUBIN INCREASED [None]
  - MEMORY IMPAIRMENT [None]
  - SOMNOLENCE [None]
  - HAEMOGLOBIN DECREASED [None]
  - DRUG INTERACTION [None]
  - IMMUNOSUPPRESSANT DRUG LEVEL INCREASED [None]
  - RENAL IMPAIRMENT [None]
